FAERS Safety Report 21701294 (Version 1)
Quarter: 2022Q4

REPORT INFORMATION
  Report Type: Report from Study
  Country: GT (occurrence: GT)
  Receive Date: 20221208
  Receipt Date: 20221208
  Transmission Date: 20230112
  Serious: Yes (Hospitalization, Other)
  Sender: FDA-Public Use
  Company Number: GT-BAYER-2022A167431

PATIENT
  Age: 33 Year
  Sex: Female

DRUGS (4)
  1. DIENOGEST\ESTRADIOL VALERATE [Suspect]
     Active Substance: DIENOGEST\ESTRADIOL VALERATE
     Indication: Endometriosis
     Dosage: UNK
     Route: 048
  2. DIENOGEST\ESTRADIOL VALERATE [Suspect]
     Active Substance: DIENOGEST\ESTRADIOL VALERATE
     Indication: Contraception
  3. MIRENA [Suspect]
     Active Substance: LEVONORGESTREL
     Dosage: 20?G/DAY
     Route: 015
     Dates: start: 2016, end: 20181121
  4. DIENOGEST [Suspect]
     Active Substance: DIENOGEST
     Indication: Endometriosis
     Dosage: UNK
     Route: 048

REACTIONS (5)
  - Ectopic pregnancy [None]
  - Pregnancy with contraceptive device [Recovered/Resolved]
  - Genital haemorrhage [Unknown]
  - Amenorrhoea [Unknown]
  - Drug ineffective [None]
